FAERS Safety Report 19567299 (Version 1)
Quarter: 2021Q3

REPORT INFORMATION
  Report Type: Report from Study
  Country: US (occurrence: US)
  Receive Date: 20210714
  Receipt Date: 20210714
  Transmission Date: 20211014
  Serious: No
  Sender: FDA-Public Use
  Company Number: US-SUNOVION-2021SUN002363

PATIENT

DRUGS (1)
  1. KYNMOBI [Suspect]
     Active Substance: APOMORPHINE HYDROCHLORIDE
     Dosage: 10MG
     Route: 060
     Dates: start: 20210617

REACTIONS (2)
  - Somnolence [Recovered/Resolved]
  - Blood pressure decreased [Unknown]

NARRATIVE: CASE EVENT DATE: 20210617
